FAERS Safety Report 5640590-4 (Version None)
Quarter: 2008Q1

REPORT INFORMATION
  Report Type: 
  Country: None (occurrence: None)
  Receive Date: 20080227
  Receipt Date: 20080219
  Transmission Date: 20080703
  Serious: Yes (Disabling, Other)
  Sender: FDA-Public Use
  Company Number: PHHY2008JP02033

PATIENT
  Age: 56 Year
  Sex: Male
  Weight: 70 kg

DRUGS (7)
  1. NEORAL [Suspect]
     Indication: MYASTHENIA GRAVIS
     Dosage: 350 MG/DAY
     Route: 048
     Dates: start: 20071201
  2. NEORAL [Suspect]
     Dosage: 100 MG/DAY
     Route: 048
  3. NITRODERM [Concomitant]
     Dosage: 25 MG/DAY
     Route: 062
  4. MEVALOTIN [Concomitant]
     Dosage: 20 MG/DAY
     Route: 048
  5. CYANOCOBALAMIN [Concomitant]
     Dosage: 1 MG/DAY
     Route: 048
  6. TRYPTANOL [Concomitant]
     Dosage: 30 MG/DAY
     Route: 048
  7. MYTELASE [Concomitant]
     Dosage: 30 MG/DAY
     Route: 048

REACTIONS (2)
  - BLOOD PRESSURE INCREASED [None]
  - CEREBRAL HAEMORRHAGE [None]
